FAERS Safety Report 7479770 (Version 3)
Quarter: 2012Q4

REPORT INFORMATION
  Report Type: 
  Country: US (occurrence: US)
  Receive Date: 20100716
  Receipt Date: 20121012
  Transmission Date: 20130627
  Serious: Yes (Hospitalization, Disabling, Other)
  Sender: FDA-Public Use
  Company Number: US-BAYER-201027959NA

PATIENT
  Age: 29 Year
  Sex: Female
  Weight: 92.97 kg

DRUGS (12)
  1. YASMIN [Suspect]
     Indication: MENOMETRORRHAGIA
     Dosage: 1 tab/day
     Route: 048
     Dates: start: 20070305, end: 20070626
  2. HISENEX HC [Concomitant]
  3. PRENATAL VITAMINS [VIT C,VIT H,MIN NOS,VIT PP,RETINOL,VIT E,VIT B [Concomitant]
  4. WARFARIN [Concomitant]
     Dosage: 4.5 mg, QD
  5. FEXOFENADINE [Concomitant]
     Dosage: 180 mg, QD
  6. CYCLOBENZAPRINE [Concomitant]
     Dosage: 10 mg, TID
  7. CYCLOBENZAPRINE [Concomitant]
     Dosage: 5 mg, UNK
  8. HYDROCODONE [HYDROCODONE] [Concomitant]
     Dosage: UNK UNK, PRN
  9. ZANTAC [Concomitant]
     Dosage: UNK UNK, PRN
  10. EXCEDRIN [Concomitant]
  11. DURADRIN [Concomitant]
  12. LAMICTAL [Concomitant]
     Indication: CONVULSION
     Dosage: UNK
     Dates: start: 200601

REACTIONS (6)
  - Deep vein thrombosis [Unknown]
  - Arthralgia [Unknown]
  - Pain [Unknown]
  - Foot fracture [None]
  - Oedema peripheral [None]
  - High risk pregnancy [None]
